FAERS Safety Report 21050167 (Version 1)
Quarter: 2022Q3

REPORT INFORMATION
  Report Type: Report from Study
  Country: CA (occurrence: CA)
  Receive Date: 20220706
  Receipt Date: 20220706
  Transmission Date: 20221026
  Serious: Yes (Other)
  Sender: FDA-Public Use
  Company Number: CA-BRISTOL-MYERS SQUIBB COMPANY-2022-063277

PATIENT
  Age: 84 Year
  Sex: Female

DRUGS (1)
  1. REBLOZYL [Suspect]
     Active Substance: LUSPATERCEPT-AAMT
     Indication: Myelodysplastic syndrome
     Dosage: 1/3 WEEKS
     Route: 058
     Dates: start: 20210625

REACTIONS (2)
  - Urosepsis [Recovering/Resolving]
  - Renal abscess [Recovering/Resolving]
